FAERS Safety Report 7752353-4 (Version None)
Quarter: 2011Q3

REPORT INFORMATION
  Report Type: 
  Country: None (occurrence: None)
  Receive Date: 20110915
  Receipt Date: 20110819
  Transmission Date: 20111222
  Serious: Yes (Death)
  Sender: FDA-Public Use
  Company Number: PHFR2011IE03191

PATIENT
  Sex: Male

DRUGS (9)
  1. CLOZAPINE [Suspect]
     Indication: SCHIZOPHRENIA
     Dosage: 575 MG/DAY
     Route: 048
     Dates: start: 20070629
  2. LITHIUM [Concomitant]
     Indication: AFFECTIVE DISORDER
     Dosage: 1000 MG/DAY
     Route: 048
  3. LAMOTRIGINE [Concomitant]
     Indication: AFFECTIVE DISORDER
  4. CLOZAPINE [Suspect]
     Dosage: 550 MG/DAY
     Route: 048
  5. LAMOTRIGINE [Concomitant]
     Indication: CONVULSION
     Dosage: 200 MG/DAY
     Route: 048
  6. ATENOLOL [Concomitant]
     Dosage: 50 MG/DAY
     Route: 048
  7. AMISULPRIDE [Suspect]
     Indication: PSYCHOTIC DISORDER
     Dosage: 300 MG/DAY
     Route: 048
  8. VALPROIC ACID [Concomitant]
     Indication: AFFECTIVE DISORDER
  9. VALPROIC ACID [Concomitant]
     Indication: CONVULSION
     Dosage: 1500 MG/DAY
     Route: 048

REACTIONS (3)
  - DEATH [None]
  - COMPLETED SUICIDE [None]
  - POISONING [None]
